FAERS Safety Report 7390032-6 (Version None)
Quarter: 2011Q2

REPORT INFORMATION
  Report Type: 
  Country: None (occurrence: None)
  Receive Date: 20110401
  Receipt Date: 20110328
  Transmission Date: 20111010
  Serious: Yes (Life-Threatening)
  Sender: FDA-Public Use
  Company Number: FR-ASTRAZENECA-2010SE41626

PATIENT
  Age: 17963 Day
  Sex: Male

DRUGS (7)
  1. SUPRANE [Suspect]
     Route: 055
     Dates: start: 20100820, end: 20100820
  2. ATRACURIUM BESYLATE [Suspect]
     Route: 042
     Dates: start: 20100820, end: 20100820
  3. SOLU-MEDROL [Suspect]
     Route: 042
     Dates: start: 20100820, end: 20100820
  4. DIPRIVAN [Suspect]
     Indication: GENERAL ANAESTHESIA
     Route: 042
     Dates: start: 20100820, end: 20100820
  5. CEFTRIAXONE WINTHROP [Suspect]
     Route: 042
     Dates: start: 20100820, end: 20100820
  6. MIDAZOLAM PANPHARMA [Suspect]
     Route: 042
     Dates: start: 20100820, end: 20100820
  7. SUFENTA PRESERVATIVE FREE [Suspect]
     Route: 042
     Dates: start: 20100820, end: 20100820

REACTIONS (2)
  - SHOCK [None]
  - CARDIO-RESPIRATORY ARREST [None]
